FAERS Safety Report 7569079-2 (Version None)
Quarter: 2011Q2

REPORT INFORMATION
  Report Type: 
  Country: None (occurrence: None)
  Receive Date: 20110623
  Receipt Date: 20110620
  Transmission Date: 20111010
  Serious: Yes (Hospitalization)
  Sender: FDA-Public Use
  Company Number: JP-ABBOTT-10P-087-0676289-00

PATIENT
  Sex: Female

DRUGS (9)
  1. SULFASALAZINE [Concomitant]
     Indication: RHEUMATOID ARTHRITIS
     Route: 048
     Dates: start: 20090611
  2. PLAUNOTOL [Concomitant]
     Indication: GASTROINTESTINAL MUCOSAL DISORDER
  3. ALENDRONATE SODIUM [Concomitant]
     Indication: OSTEOPOROSIS
     Route: 048
     Dates: start: 20090521, end: 20100924
  4. HUMIRA [Suspect]
     Indication: RHEUMATOID ARTHRITIS
     Route: 058
     Dates: start: 20091023, end: 20100911
  5. PREDNISOLONE [Concomitant]
     Indication: RHEUMATOID ARTHRITIS
     Dosage: (5-0-2)/DAY
     Route: 048
     Dates: start: 20090126
  6. CELECOXIB [Concomitant]
     Indication: RHEUMATOID ARTHRITIS
     Route: 048
     Dates: start: 20090223, end: 20100316
  7. SULFAMETHOXAZOLE AND TRIMETHOPRIM [Concomitant]
     Indication: PNEUMOCYSTIS JIROVECI PNEUMONIA
     Dosage: TUESDAY + FRIDAY
     Route: 048
     Dates: start: 20090305, end: 20100924
  8. SULFAMETHOXAZOLE AND TRIMETHOPRIM [Concomitant]
     Indication: PROPHYLAXIS
  9. PLAUNOTOL [Concomitant]
     Indication: PROPHYLAXIS
     Route: 048
     Dates: start: 20090223

REACTIONS (2)
  - PERICARDITIS [None]
  - PLEURISY [None]
